FAERS Safety Report 5729175-9 (Version None)
Quarter: 2008Q2

REPORT INFORMATION
  Report Type: 
  Country: None (occurrence: None)
  Receive Date: 20080430
  Receipt Date: 20071204
  Transmission Date: 20081010
  Serious: No
  Sender: FDA-Public Use
  Company Number: 2007PV033802

PATIENT
  Age: 55 Year
  Sex: Male

DRUGS (5)
  1. SYMLIN [Suspect]
     Indication: TYPE 2 DIABETES MELLITUS
     Dosage: 90 MCG;BID;SC ; 60 MCG;BID;SC ; 30 MCG;BID;SC
     Route: 058
     Dates: start: 20071101, end: 20071101
  2. SYMLIN [Suspect]
     Indication: TYPE 2 DIABETES MELLITUS
     Dosage: 90 MCG;BID;SC ; 60 MCG;BID;SC ; 30 MCG;BID;SC
     Route: 058
     Dates: start: 20071101, end: 20071101
  3. SYMLIN [Suspect]
     Indication: TYPE 2 DIABETES MELLITUS
     Dosage: 90 MCG;BID;SC ; 60 MCG;BID;SC ; 30 MCG;BID;SC
     Route: 058
     Dates: start: 20071101
  4. HUMALOG [Concomitant]
  5. LANTUS [Concomitant]

REACTIONS (1)
  - INJECTION SITE PAIN [None]
